FAERS Safety Report 7412930-7 (Version None)
Quarter: 2011Q2

REPORT INFORMATION
  Report Type: 
  Country: None (occurrence: None)
  Receive Date: 20110408
  Receipt Date: 20110408
  Transmission Date: 20111010
  Serious: No
  Sender: FDA-Public Use
  Company Number: None

PATIENT
  Age: 68 Year
  Sex: Female
  Weight: 97.5234 kg

DRUGS (1)
  1. BETASERON [Suspect]
     Indication: MULTIPLE SCLEROSIS
     Dosage: 1.2 ML EVERY OTHER DAY SQ
     Route: 058
     Dates: start: 20101220, end: 20110405

REACTIONS (4)
  - PRURITUS [None]
  - INJECTION SITE PAIN [None]
  - PRURITUS GENERALISED [None]
  - INJECTION SITE HAEMATOMA [None]
